FAERS Safety Report 8512091-7 (Version None)
Quarter: 2012Q3

REPORT INFORMATION
  Report Type: 
  Country: None (occurrence: None)
  Receive Date: 20120716
  Receipt Date: 20120712
  Transmission Date: 20120928
  Serious: Yes (Other)
  Sender: FDA-Public Use
  Company Number: PHHY2012BR038371

PATIENT
  Age: 56 Year
  Sex: Male

DRUGS (4)
  1. DIOVAN HCT [Suspect]
     Dosage: 1 DF (320 MG VALSAR AND 12.5 MG HYDRO), UNK
  2. DIOVAN HCT [Suspect]
     Indication: HYPERTENSION
     Dosage: 1 DF (160 MG VALSAR AND 12.5 MG HYDRO), DAILY
     Route: 048
  3. ATENOLOL [Concomitant]
     Indication: HYPERTENSION
     Dosage: 1 DF, A DAY
  4. METOPROLOL SUCCINATE [Concomitant]
     Indication: HYPERTENSION
     Dosage: 1 DF, A DAY

REACTIONS (5)
  - CONDITION AGGRAVATED [None]
  - PALPITATIONS [None]
  - MALAISE [None]
  - FATIGUE [None]
  - NEPHROLITHIASIS [None]
